FAERS Safety Report 18732556 (Version 1)
Quarter: 2021Q1

REPORT INFORMATION
  Report Type: Spontaneous
  Country: JP (occurrence: JP)
  Receive Date: 20210113
  Receipt Date: 20210113
  Transmission Date: 20210419
  Serious: Yes (Other)
  Sender: FDA-Public Use
  Company Number: JP-CELLTRION INC.-2020JP028808

PATIENT

DRUGS (2)
  1. TRASTUZUMAB BS FOR I.V. INFUSION [NK] [Suspect]
     Active Substance: TRASTUZUMAB
     Indication: BREAST CANCER
     Dosage: 440 MILLIGRAM, QD
     Route: 041
     Dates: start: 20200803, end: 20201005
  2. FASLODEX [Suspect]
     Active Substance: FULVESTRANT
     Indication: PRODUCT USED FOR UNKNOWN INDICATION
     Dosage: UNKNOWN
     Route: 065
     Dates: start: 20161208, end: 20201005

REACTIONS (6)
  - Localised oedema [Unknown]
  - Face oedema [Unknown]
  - Choking [Unknown]
  - Rash [Recovered/Resolved]
  - Pruritus [Unknown]
  - Oedema peripheral [Unknown]

NARRATIVE: CASE EVENT DATE: 20201005
